FAERS Safety Report 5410972-4 (Version None)
Quarter: 2007Q3

REPORT INFORMATION
  Report Type: 
  Country: None (occurrence: None)
  Receive Date: 20070810
  Receipt Date: 20070618
  Transmission Date: 20080115
  Serious: No
  Sender: FDA-Public Use
  Company Number: A0657226A

PATIENT
  Age: 44 Year
  Sex: Female

DRUGS (2)
  1. ALTABAX [Suspect]
     Indication: IMPETIGO
     Route: 061
     Dates: start: 20070618
  2. ALDARA [Concomitant]

REACTIONS (4)
  - APPLICATION SITE IRRITATION [None]
  - CHEILITIS [None]
  - ORAL HERPES [None]
  - PRURITUS [None]
